FAERS Safety Report 7466897-6 (Version None)
Quarter: 2011Q2

REPORT INFORMATION
  Report Type: 
  Country: None (occurrence: None)
  Receive Date: 20110509
  Receipt Date: 20100920
  Transmission Date: 20111010
  Serious: No
  Sender: FDA-Public Use
  Company Number: US-ALEXION-A201001221

PATIENT
  Sex: Female

DRUGS (3)
  1. ATIVAN [Concomitant]
     Indication: PREMEDICATION
     Dosage: BEFORE EACH INFUSION
  2. SOLIRIS [Suspect]
     Indication: PAROXYSMAL NOCTURNAL HAEMOGLOBINURIA
     Dosage: UNK
     Route: 042
  3. ZOFRAN [Concomitant]
     Indication: PREMEDICATION
     Dosage: BEFORE EACH INFUSION

REACTIONS (5)
  - FATIGUE [None]
  - DYSPNOEA EXERTIONAL [None]
  - FEELING ABNORMAL [None]
  - CHROMATURIA [None]
  - HEADACHE [None]
